FAERS Safety Report 6950664-3 (Version None)
Quarter: 2010Q3

REPORT INFORMATION
  Report Type: 
  Country: None (occurrence: None)
  Receive Date: 20100828
  Receipt Date: 20100217
  Transmission Date: 20110219
  Serious: No
  Sender: FDA-Public Use
  Company Number: US-ABBOTT-10P-163-0628049-00

PATIENT
  Sex: Female
  Weight: 61.29 kg

DRUGS (5)
  1. NIASPAN [Suspect]
     Indication: BLOOD CHOLESTEROL INCREASED
     Route: 048
     Dates: start: 20091201, end: 20091201
  2. NIASPAN [Suspect]
     Indication: PROPHYLAXIS
  3. NIASPAN [Suspect]
     Indication: ARTERIOSCLEROSIS
  4. ASPIRIN [Concomitant]
     Indication: PROPHYLAXIS
     Dosage: TAKES AT SAME TIME AS NIASPAN COATED
     Route: 048
  5. HIGH BLOOD PRESSURE MEDICATION [Concomitant]
     Indication: HYPERTENSION

REACTIONS (2)
  - FLUSHING [None]
  - SKIN BURNING SENSATION [None]
